FAERS Safety Report 6448295-7 (Version None)
Quarter: 2009Q4

REPORT INFORMATION
  Report Type: 
  Country: None (occurrence: None)
  Receive Date: 20091120
  Receipt Date: 20091111
  Transmission Date: 20100525
  Serious: Yes (Hospitalization, Other)
  Sender: FDA-Public Use
  Company Number: PHEH2009US15733

PATIENT
  Sex: Female

DRUGS (9)
  1. FEMARA [Suspect]
     Dosage: UNK
     Dates: start: 20090301
  2. CHLORTHALIDONE [Suspect]
  3. ASPIRIN [Suspect]
  4. CITALOPRAM HYDROBROMIDE [Concomitant]
  5. LEVOTHYROXINE SODIUM [Concomitant]
  6. ALENDRONATE SODIUM [Concomitant]
  7. PREDNISONE [Concomitant]
  8. AMLODIPINE [Concomitant]
  9. CHOLESTEROL- AND TRIGLYCERIDE REDUCERS [Concomitant]

REACTIONS (4)
  - HOT FLUSH [None]
  - IDIOPATHIC THROMBOCYTOPENIC PURPURA [None]
  - INCREASED TENDENCY TO BRUISE [None]
  - PLATELET COUNT DECREASED [None]
